FAERS Safety Report 12551751 (Version 3)
Quarter: 2016Q4

REPORT INFORMATION
  Report Type: Spontaneous
  Country: US (occurrence: US)
  Receive Date: 20160713
  Receipt Date: 20161018
  Transmission Date: 20170207
  Serious: No
  Sender: FDA-Public Use
  Company Number: US-BAYER-2016-136032

PATIENT
  Age: 79 Year
  Sex: Female
  Weight: 81.63 kg

DRUGS (2)
  1. MIRALAX [Suspect]
     Active Substance: POLYETHYLENE GLYCOL 3350
     Indication: COLONOSCOPY
     Dosage: UNK
     Dates: start: 2007
  2. DULCOLAX (DOCUSATE SODIUM) [Concomitant]
     Active Substance: DOCUSATE SODIUM
     Dosage: 2 DF, ONCE

REACTIONS (2)
  - Product use issue [None]
  - Off label use [None]

NARRATIVE: CASE EVENT DATE: 201605
